FAERS Safety Report 9369483 (Version 1)
Quarter: 2013Q2

REPORT INFORMATION
  Report Type: Spontaneous
  Country: US (occurrence: None)
  Receive Date: 20130625
  Receipt Date: 20130625
  Transmission Date: 20140414
  Serious: Yes (Other)
  Sender: FDA-Public Use
  Company Number: None

PATIENT
  Age: 77 Year
  Sex: Male

DRUGS (4)
  1. NEUPRO [Suspect]
     Indication: PARKINSON^S DISEASE
     Dosage: NEUPRO PATCH 2MG DAILY TOPICAL
     Route: 061
     Dates: end: 20130607
  2. AMANTADINE ELIXIR [Concomitant]
  3. SINEMET CR 50/200 [Concomitant]
  4. SINEMET 25/100 [Concomitant]

REACTIONS (5)
  - Chemical burn of skin [None]
  - Wound secretion [None]
  - Erythema [None]
  - Laceration [None]
  - Burns second degree [None]
